FAERS Safety Report 11208835 (Version 1)
Quarter: 2015Q2

REPORT INFORMATION
  Report Type: Spontaneous
  Country: RO (occurrence: RO)
  Receive Date: 20150622
  Receipt Date: 20150622
  Transmission Date: 20150821
  Serious: Yes (Other)
  Sender: FDA-Public Use
  Company Number: RO-BAXTER-2015BAX031981

PATIENT
  Age: 70 Year
  Sex: Male

DRUGS (9)
  1. SEVOFLURAN BAXTER 100% LICHID PENTRU VAPORI DE INHALAT [Suspect]
     Active Substance: SEVOFLURANE
     Indication: MAINTENANCE OF ANAESTHESIA
     Route: 055
  2. ATRACURIUM [Suspect]
     Active Substance: ATRACURIUM
     Indication: GENERAL ANAESTHESIA
     Route: 065
  3. SUFENTANIL [Suspect]
     Active Substance: SUFENTANIL
     Indication: GENERAL ANAESTHESIA
     Route: 065
  4. ERTAPENEM [Concomitant]
     Active Substance: ERTAPENEM
     Indication: INFECTION PROPHYLAXIS
     Route: 042
  5. LINEZOLID. [Concomitant]
     Active Substance: LINEZOLID
     Indication: INFECTION PROPHYLAXIS
     Route: 042
  6. SUCCINYLCHOLINE [Suspect]
     Active Substance: SUCCINYLCHOLINE
     Indication: GENERAL ANAESTHESIA
     Route: 065
  7. MOXIFLOXACINE [Concomitant]
     Indication: INFECTION PROPHYLAXIS
     Route: 042
  8. ATROPINE [Suspect]
     Active Substance: ATROPINE
     Indication: GENERAL ANAESTHESIA
     Route: 065
  9. THIOPENTAL [Suspect]
     Active Substance: THIOPENTAL
     Indication: GENERAL ANAESTHESIA
     Route: 065

REACTIONS (9)
  - Haemoptysis [Unknown]
  - Acute respiratory failure [Recovered/Resolved]
  - Tracheal haemorrhage [Unknown]
  - Pneumothorax [Recovered/Resolved]
  - Ischaemic stroke [Recovering/Resolving]
  - Pneumomediastinum [Unknown]
  - Coma [Recovered/Resolved]
  - Subcutaneous emphysema [Recovering/Resolving]
  - Cough [Unknown]
